FAERS Safety Report 10749003 (Version 1)
Quarter: 2015Q1

REPORT INFORMATION
  Report Type: Spontaneous
  Country: US (occurrence: None)
  Receive Date: 20150128
  Receipt Date: 20150128
  Transmission Date: 20150721
  Serious: Yes (Life-Threatening, Hospitalization, Disabling, Other)
  Sender: FDA-Public Use
  Company Number: None

PATIENT
  Age: 42 Year
  Sex: Female
  Weight: 68.04 kg

DRUGS (1)
  1. KLONOPIN [Suspect]
     Active Substance: CLONAZEPAM
     Indication: ANXIETY
     Dosage: 2 PILKS, TWICE DAILY, TAKEN BY MOUTH
     Route: 048
     Dates: start: 20130515, end: 20140718

REACTIONS (6)
  - Laceration [None]
  - Fear [None]
  - Visual acuity reduced [None]
  - Panic attack [None]
  - Hyperthyroidism [None]
  - Suicidal ideation [None]

NARRATIVE: CASE EVENT DATE: 20140718
